FAERS Safety Report 23301100 (Version 1)
Quarter: 2023Q4

REPORT INFORMATION
  Report Type: Spontaneous
  Country: US (occurrence: None)
  Receive Date: 20231214
  Receipt Date: 20231214
  Transmission Date: 20240110
  Serious: Yes (Hospitalization, Disabling)
  Sender: FDA-Public Use
  Company Number: None

PATIENT
  Age: 45 Year
  Sex: Female
  Weight: 125.55 kg

DRUGS (11)
  1. CIPROFLOXACIN [Suspect]
     Active Substance: CIPROFLOXACIN
     Indication: Urinary tract infection
  2. CIPROFLOXACIN [Suspect]
     Active Substance: CIPROFLOXACIN
     Indication: Sinusitis
  3. CIPROFLOXACIN [Suspect]
     Active Substance: CIPROFLOXACIN
     Indication: Pneumonia
  4. LEVOFLOXACIN [Suspect]
     Active Substance: LEVOFLOXACIN
     Indication: Pneumonia
     Dates: start: 20140115, end: 20150203
  5. CYMBALTA [Concomitant]
     Active Substance: DULOXETINE HYDROCHLORIDE
  6. GABAPENTIN [Concomitant]
  7. LOSARTAN [Concomitant]
     Active Substance: LOSARTAN
  8. Metroplol [Concomitant]
  9. Albuterol [Concomitant]
  10. Hydrochlorathizaide [Concomitant]
  11. PRILOSEC [Concomitant]
     Active Substance: OMEPRAZOLE MAGNESIUM

REACTIONS (24)
  - Chronic kidney disease [None]
  - Myasthenia gravis [None]
  - Organ failure [None]
  - Anxiety [None]
  - Muscle spasms [None]
  - Insomnia [None]
  - Hallucination [None]
  - Infectious mononucleosis [None]
  - Muscular weakness [None]
  - Fatigue [None]
  - Weight decreased [None]
  - Confusional state [None]
  - Intervertebral disc degeneration [None]
  - Arthropathy [None]
  - Chondropathy [None]
  - Sleep disorder [None]
  - Uterine leiomyoma [None]
  - Polycystic ovaries [None]
  - Intracranial pressure increased [None]
  - Spinal disorder [None]
  - Trigeminal neuralgia [None]
  - Blindness [None]
  - Tooth infection [None]
  - Tooth fracture [None]

NARRATIVE: CASE EVENT DATE: 20150115
